FAERS Safety Report 14223832 (Version 1)
Quarter: 2017Q4

REPORT INFORMATION
  Report Type: Report from Study
  Country: None (occurrence: US)
  Receive Date: 20171125
  Receipt Date: 20171125
  Transmission Date: 20180321
  Serious: Yes (Disabling)
  Sender: FDA-Public Use
  Company Number: US-ABBVIE-17K-163-2171203-00

PATIENT
  Sex: Female

DRUGS (1)
  1. HUMIRA [Suspect]
     Active Substance: ADALIMUMAB
     Indication: PSORIASIS
     Route: 058

REACTIONS (6)
  - Psoriasis [Not Recovered/Not Resolved]
  - Spinal fusion acquired [Recovering/Resolving]
  - Arthritis [Unknown]
  - Alopecia [Not Recovered/Not Resolved]
  - Stress [Not Recovered/Not Resolved]
  - Spinal fracture [Recovered/Resolved]
